FAERS Safety Report 10153996 (Version 2)
Quarter: 2014Q2

REPORT INFORMATION
  Report Type: Spontaneous
  Country: US (occurrence: US)
  Receive Date: 20140506
  Receipt Date: 20140605
  Transmission Date: 20141212
  Serious: No
  Sender: FDA-Public Use
  Company Number: US-SHIRE-US201401938

PATIENT
  Age: 8 Year
  Sex: Female
  Weight: 36.64 kg

DRUGS (2)
  1. VYVANSE [Suspect]
     Indication: ATTENTION DEFICIT/HYPERACTIVITY DISORDER
     Dosage: 20 MG, 1X/DAY:QD (DURING SCHOOL WEEK)
     Route: 048
     Dates: start: 201302, end: 201402
  2. VYVANSE [Suspect]
     Dosage: 30 MG, 1X/DAY:QD (DURING SCHOOL WEEK)
     Route: 048
     Dates: start: 201402

REACTIONS (3)
  - Disturbance in attention [Recovered/Resolved]
  - Increased appetite [Recovered/Resolved]
  - Drug ineffective [Recovered/Resolved]
